FAERS Safety Report 20884380 (Version 3)
Quarter: 2022Q2

REPORT INFORMATION
  Report Type: Spontaneous
  Country: JP (occurrence: JP)
  Receive Date: 20220527
  Receipt Date: 20220613
  Transmission Date: 20220720
  Serious: Yes (Other)
  Sender: FDA-Public Use
  Company Number: JP-PFIZER INC-202200740120

PATIENT
  Sex: Female

DRUGS (6)
  1. LYRICA [Suspect]
     Active Substance: PREGABALIN
     Indication: Sciatica
     Dosage: REPORTED AS ^TAKING 75 MG AND 75 MG^ FOR ABOUT 8 YEARS
     Route: 048
  2. LOXOPROFEN SODIUM [Concomitant]
     Active Substance: LOXOPROFEN SODIUM
     Indication: Sciatica
     Dosage: UNK, AS NEEDED
     Route: 048
  3. LOXOPROFEN SODIUM [Concomitant]
     Active Substance: LOXOPROFEN SODIUM
     Indication: Headache
  4. PRAMIPEXOLE [Concomitant]
     Active Substance: PRAMIPEXOLE
     Route: 048
  5. LEXAPRO [Concomitant]
     Active Substance: ESCITALOPRAM OXALATE
     Route: 048
  6. OHTA^S ISAN [Concomitant]
     Route: 048

REACTIONS (10)
  - Type 2 diabetes mellitus [Recovering/Resolving]
  - Renal impairment [Not Recovered/Not Resolved]
  - Weight increased [Not Recovered/Not Resolved]
  - Hypoaesthesia [Unknown]
  - Increased appetite [Unknown]
  - Ingrowing nail [Unknown]
  - Cystitis [Not Recovered/Not Resolved]
  - Urethritis [Not Recovered/Not Resolved]
  - Blood creatinine increased [Unknown]
  - Fall [Unknown]

NARRATIVE: CASE EVENT DATE: 20220519
